FAERS Safety Report 10269613 (Version 1)
Quarter: 2014Q2

REPORT INFORMATION
  Report Type: Spontaneous
  Country: US (occurrence: None)
  Receive Date: 20140626
  Receipt Date: 20140626
  Transmission Date: 20141212
  Serious: No
  Sender: FDA-Public Use
  Company Number: None

PATIENT
  Age: 19 Year
  Sex: Female
  Weight: 43.09 kg

DRUGS (1)
  1. SULFAMETHOXAZOLE/TRIMETHOPRIM [Suspect]
     Indication: ACNE
     Dosage: 1 LILL ONCE DAILY TAKEN BY MOUTH
     Route: 048
     Dates: start: 20090601, end: 20090731

REACTIONS (2)
  - Nightmare [None]
  - Abnormal dreams [None]
